FAERS Safety Report 8921114 (Version 1)
Quarter: 2012Q4

REPORT INFORMATION
  Report Type: 
  Country: CA (occurrence: CA)
  Receive Date: 20121121
  Receipt Date: 20121121
  Transmission Date: 20130627
  Serious: Yes (Other)
  Sender: FDA-Public Use
  Company Number: CA-ASTRAZENECA-2012SE85452

PATIENT
  Sex: Female

DRUGS (1)
  1. ROPIVACAINE [Suspect]
     Indication: NERVE BLOCK
     Route: 053

REACTIONS (1)
  - Anaphylactoid reaction [Unknown]
